FAERS Safety Report 14737748 (Version 4)
Quarter: 2018Q3

REPORT INFORMATION
  Report Type: Spontaneous
  Country: NO (occurrence: NO)
  Receive Date: 20180409
  Receipt Date: 20180830
  Transmission Date: 20181010
  Serious: Yes (Disabling)
  Sender: FDA-Public Use
  Company Number: NO-NAPPMUNDI-GBR-2018-0054624

PATIENT
  Age: 41 Year
  Sex: Male
  Weight: 65 kg

DRUGS (7)
  1. NORSPAN [Suspect]
     Active Substance: BUPRENORPHINE
     Dosage: 10 MCG, Q1H
     Route: 062
  2. VIVAL [Concomitant]
     Active Substance: DIAZEPAM
     Indication: ANXIETY
  3. NORSPAN [Suspect]
     Active Substance: BUPRENORPHINE
     Indication: PAIN
     Dosage: 30 MCG, Q1H
     Route: 062
     Dates: end: 201801
  4. NORSPAN [Suspect]
     Active Substance: BUPRENORPHINE
     Dosage: 5 MCG, Q1H
     Route: 062
     Dates: start: 201710
  5. NORSPAN [Suspect]
     Active Substance: BUPRENORPHINE
     Dosage: 20 MCG, Q1H (STRENGTH 10MG)
     Route: 062
  6. OXYCONTIN [Concomitant]
     Active Substance: OXYCODONE HYDROCHLORIDE
     Indication: PAIN
  7. VITAMIN D                          /00107901/ [Concomitant]
     Active Substance: ERGOCALCIFEROL

REACTIONS (24)
  - Toxicity to various agents [Unknown]
  - Alopecia [Recovered/Resolved with Sequelae]
  - Application site wound [Recovering/Resolving]
  - Blood folate decreased [Unknown]
  - Wound haemorrhage [Recovered/Resolved with Sequelae]
  - Puncture site abscess [Unknown]
  - Drug ineffective [Unknown]
  - Mental disorder [Unknown]
  - Application site scar [Not Recovered/Not Resolved]
  - Skin atrophy [Unknown]
  - Mental status changes [Unknown]
  - Amino acid level increased [Unknown]
  - Application site alopecia [Unknown]
  - Application site erosion [Recovering/Resolving]
  - Asthenia [Unknown]
  - Rash [Unknown]
  - Malaise [Unknown]
  - Pyrexia [Unknown]
  - Bedridden [Unknown]
  - Vitamin D decreased [Unknown]
  - Fear [Unknown]
  - Skin papilloma [Unknown]
  - Suicidal ideation [Unknown]
  - Dermal cyst [Recovering/Resolving]

NARRATIVE: CASE EVENT DATE: 201710
